FAERS Safety Report 4294482-6 (Version None)
Quarter: 2004Q1

REPORT INFORMATION
  Report Type: 
  Country: None (occurrence: None)
  Receive Date: 20040211
  Receipt Date: 20040202
  Transmission Date: 20041129
  Serious: Yes (Other)
  Sender: FDA-Public Use
  Company Number: 2004004709

PATIENT
  Age: 71 Year
  Sex: Female

DRUGS (3)
  1. SORTIS (ATORVASTATIN) [Suspect]
     Indication: MYOCARDIAL ISCHAEMIA
     Dosage: 10 MG (DAILY), ORAL
     Route: 048
     Dates: start: 20031201, end: 20040101
  2. AMIODARONE HCL [Concomitant]
  3. ISOSORBIDE DINITRATE [Concomitant]

REACTIONS (3)
  - CHOLELITHIASIS [None]
  - DIARRHOEA [None]
  - HEPATITIS B [None]
